FAERS Safety Report 14163085 (Version 1)
Quarter: 2017Q4

REPORT INFORMATION
  Report Type: Spontaneous
  Country: CN (occurrence: CN)
  Receive Date: 20171106
  Receipt Date: 20171106
  Transmission Date: 20180321
  Serious: Yes (Hospitalization, Other)
  Sender: FDA-Public Use
  Company Number: CN-ASTELLAS-2017US044852

PATIENT
  Age: 31 Year
  Sex: Female

DRUGS (3)
  1. METHYLPREDNISOLONE. [Concomitant]
     Active Substance: METHYLPREDNISOLONE
     Indication: RENAL TRANSPLANT
     Dosage: UNK UNK, UNKNOWN FREQ.
     Route: 065
  2. MYCOPHENOLATE MOFETIL. [Concomitant]
     Active Substance: MYCOPHENOLATE MOFETIL
     Indication: RENAL TRANSPLANT
     Dosage: UNK UNK, UNKNOWN FREQ.
     Route: 065
  3. TACROLIMUS. [Suspect]
     Active Substance: TACROLIMUS
     Indication: RENAL TRANSPLANT
     Dosage: UNK UNK, UNKNOWN FREQ.
     Route: 048

REACTIONS (15)
  - Metabolic acidosis [Unknown]
  - Left ventricular hypertrophy [Unknown]
  - Hypertensive heart disease [Unknown]
  - Anaemia [Unknown]
  - Ascites [Unknown]
  - Acute kidney injury [Unknown]
  - Premature delivery [Unknown]
  - Left atrial enlargement [Unknown]
  - Hypoalbuminaemia [Unknown]
  - Oedematous kidney [Unknown]
  - Pericardial effusion [Unknown]
  - Blood creatinine increased [Unknown]
  - Exposure during pregnancy [Unknown]
  - Pre-eclampsia [Unknown]
  - Pleural effusion [Unknown]
